FAERS Safety Report 8718704 (Version 3)
Quarter: 2016Q3

REPORT INFORMATION
  Report Type: Spontaneous
  Country: US (occurrence: US)
  Receive Date: 20120810
  Receipt Date: 20160927
  Transmission Date: 20161109
  Serious: Yes (Other)
  Sender: FDA-Public Use
  Company Number: US-ASTRAZENECA-2011SE64872

PATIENT
  Age: 645 Month
  Sex: Female
  Weight: 81.6 kg

DRUGS (8)
  1. LEVERMIR [Concomitant]
     Indication: DIABETES MELLITUS
     Route: 058
     Dates: start: 2014
  2. NOVOLIN R [Concomitant]
     Active Substance: INSULIN HUMAN
     Indication: DIABETES MELLITUS
     Dosage: 20 UNITS AT BREAKFAST AND LUNCH AND 25 UNITS AT DINNER AS WELL AS A SLIDING SCALE
     Route: 058
     Dates: start: 2009
  3. METFORMIN [Concomitant]
     Active Substance: METFORMIN HYDROCHLORIDE
     Indication: DIABETES MELLITUS
     Dosage: METFORMIN TWICE DAILY
     Route: 048
  4. LEVOTHYROXIN [Concomitant]
     Active Substance: LEVOTHYROXINE
     Indication: THYROID DISORDER
     Dosage: 125 DAILY
     Route: 048
     Dates: start: 1996
  5. METFORMIN [Concomitant]
     Active Substance: METFORMIN HYDROCHLORIDE
     Indication: DIABETES MELLITUS
     Route: 048
     Dates: start: 2006
  6. ARIMIDEX [Suspect]
     Active Substance: ANASTROZOLE
     Indication: PREMATURE MENOPAUSE
     Route: 048
     Dates: start: 2011, end: 201602
  7. ZOLADEX [Suspect]
     Active Substance: GOSERELIN ACETATE
     Indication: PREMATURE MENOPAUSE
     Route: 058
     Dates: start: 2011, end: 201602
  8. ZOLADEX [Suspect]
     Active Substance: GOSERELIN ACETATE
     Indication: PREMATURE MENOPAUSE
     Dosage: UNK
     Route: 058

REACTIONS (6)
  - Breast cancer recurrent [Unknown]
  - Off label use [Unknown]
  - Drug dose omission [Unknown]
  - Pain in extremity [Unknown]
  - Product use issue [Unknown]
  - Therapy cessation [Unknown]

NARRATIVE: CASE EVENT DATE: 201602
